FAERS Safety Report 13334100 (Version 17)
Quarter: 2017Q4

REPORT INFORMATION
  Report Type: Report from Study
  Country: None (occurrence: JP)
  Receive Date: 20170314
  Receipt Date: 20171220
  Transmission Date: 20180320
  Serious: Yes (Hospitalization)
  Sender: FDA-Public Use
  Company Number: JP-ABBVIE-17P-087-1902427-00

PATIENT
  Age: 58 Year
  Sex: Male
  Weight: 58 kg

DRUGS (43)
  1. DUODOPA [Suspect]
     Active Substance: CARBIDOPA\LEVODOPA
     Dosage: MD: 9 ML, CD: 4 ML/HR X 16 HR, ED: 2.6 ML/UNIT X 2
     Route: 050
     Dates: start: 20170502, end: 20170515
  2. ROTIGOTINE [Concomitant]
     Active Substance: ROTIGOTINE
     Route: 062
     Dates: start: 20170328, end: 20170511
  3. ROTIGOTINE [Concomitant]
     Active Substance: ROTIGOTINE
     Route: 062
     Dates: start: 20170511
  4. QUETIAPINE FUMARATE. [Concomitant]
     Active Substance: QUETIAPINE FUMARATE
     Indication: PRODUCT USED FOR UNKNOWN INDICATION
     Dates: start: 20170217, end: 20170423
  5. ENTACAPONE. [Concomitant]
     Active Substance: ENTACAPONE
     Indication: PRODUCT USED FOR UNKNOWN INDICATION
     Dates: start: 20170412
  6. ENEVO [Concomitant]
     Indication: PROPHYLAXIS
     Route: 048
     Dates: start: 20171025, end: 20171025
  7. DUODOPA [Suspect]
     Active Substance: CARBIDOPA\LEVODOPA
     Indication: PRODUCT USED FOR UNKNOWN INDICATION
     Dosage: MD: 8 ML, CD: 2 ML/HR X 16 HR
     Route: 050
     Dates: start: 20170216, end: 20170216
  8. DUODOPA [Suspect]
     Active Substance: CARBIDOPA\LEVODOPA
     Dosage: MD: 6 ML, CD: 3.7 ML/HR X 16 HR, ED: 2 ML/UNIT X 1
     Route: 050
     Dates: start: 20170223, end: 20170224
  9. DUODOPA [Suspect]
     Active Substance: CARBIDOPA\LEVODOPA
     Dosage: MD: 9 ML, CD: 4.6 ML/HR X 16 HR, ED: 3 ML/UNIT X 2
     Route: 050
     Dates: start: 20170317, end: 20170405
  10. DUODOPA [Suspect]
     Active Substance: CARBIDOPA\LEVODOPA
     Dosage: MD: 9 ML, CD: 4.4 ML/HR X 16 HR, ED: 2.6 ML/UNIT X 2
     Route: 050
     Dates: start: 20170414, end: 20170419
  11. DUODOPA [Suspect]
     Active Substance: CARBIDOPA\LEVODOPA
     Dosage: MD: 9 ML, CD: 4 ML/HR X 13 HR, ED: 2.6 ML/UNIT X 3
     Route: 050
     Dates: start: 20170912
  12. ZONISAMIDE. [Concomitant]
     Active Substance: ZONISAMIDE
     Route: 048
     Dates: start: 20170405, end: 20170531
  13. QUETIAPINE FUMARATE. [Concomitant]
     Active Substance: QUETIAPINE FUMARATE
     Dates: start: 20170424, end: 20170507
  14. QUETIAPINE FUMARATE. [Concomitant]
     Active Substance: QUETIAPINE FUMARATE
     Dates: start: 20170508
  15. DUODOPA [Suspect]
     Active Substance: CARBIDOPA\LEVODOPA
     Dosage: MD: 6 ML, CD: 3.7 ML/HR X 16 HR, ED: 2 ML/UNIT X 1
     Route: 050
     Dates: start: 20170224, end: 20170227
  16. ROTIGOTINE [Concomitant]
     Active Substance: ROTIGOTINE
     Indication: PRODUCT USED FOR UNKNOWN INDICATION
     Route: 062
     Dates: end: 20170328
  17. LEVODOPA/CARBIDOPA HYDRATE [Concomitant]
     Indication: PRODUCT USED FOR UNKNOWN INDICATION
     Route: 048
     Dates: start: 20170516
  18. PYRIDOXAL PHOSPHATE HYDRATE [Concomitant]
     Indication: PRODUCT USED FOR UNKNOWN INDICATION
     Dates: start: 20170321, end: 20170524
  19. DOPACOL [Concomitant]
     Active Substance: CARBIDOPA\LEVODOPA
     Indication: PARKINSON^S DISEASE
     Dosage: THE AMOUNT OF LEVODOPA CONVERTED TO 16-HOUR DOSE DURING DAYTIME WAS 200.
     Route: 048
     Dates: start: 20170516, end: 2017
  20. DUODOPA [Suspect]
     Active Substance: CARBIDOPA\LEVODOPA
     Dosage: MD: 8 ML, CD: 2.4 ML/HR X 16 HR, ED: 1 ML/UNIT X 1
     Route: 050
     Dates: start: 20170217, end: 20170217
  21. DUODOPA [Suspect]
     Active Substance: CARBIDOPA\LEVODOPA
     Dosage: MD: 6 ML, CD: 4.4 ML/HR X 16 HR, ED: 3 ML/UNIT X 2
     Route: 050
     Dates: start: 20170303, end: 20170310
  22. DUODOPA [Suspect]
     Active Substance: CARBIDOPA\LEVODOPA
     Dosage: MD: 9 ML, CD: 3.8 ML/HR X 16 HR, ED: 2.6 ML/UNIT X 2
     Route: 050
     Dates: start: 20170425, end: 20170502
  23. DICLOFENAC SODIUM. [Concomitant]
     Active Substance: DICLOFENAC SODIUM
     Indication: PRODUCT USED FOR UNKNOWN INDICATION
     Dosage: Q.S
     Dates: start: 20170808, end: 20170912
  24. DUODOPA [Suspect]
     Active Substance: CARBIDOPA\LEVODOPA
     Dosage: MD: 8 ML, CD: 2.2 ML/HR X 16 HR, ED: 1 ML/UNIT X 1
     Route: 050
     Dates: start: 20170216, end: 20170217
  25. DUODOPA [Suspect]
     Active Substance: CARBIDOPA\LEVODOPA
     Dosage: MD: 6 ML, CD: 4.1 ML/HR X 16 HR, ED: 2 ML/UNIT X 2
     Route: 050
     Dates: start: 20170301, end: 20170302
  26. DUODOPA [Suspect]
     Active Substance: CARBIDOPA\LEVODOPA
     Dosage: MD: 9 ML, CD: 4.2 ML/HR X 16 HR, ED: 3 ML/UNIT X 2
     Route: 050
     Dates: start: 20170411, end: 20170414
  27. DUODOPA [Suspect]
     Active Substance: CARBIDOPA\LEVODOPA
     Dosage: MD: 6 ML, CD: 3.9 ML/HR X 16 HR, ED: 2 ML/UNIT X 1
     Route: 050
     Dates: start: 20170227, end: 20170301
  28. DUODOPA [Suspect]
     Active Substance: CARBIDOPA\LEVODOPA
     Dosage: MD: 6 ML, CD: 4.4 ML/HR X 16 HR, ED: 2 ML/UNIT X 2
     Route: 050
     Dates: start: 20170302, end: 20170303
  29. DUODOPA [Suspect]
     Active Substance: CARBIDOPA\LEVODOPA
     Dosage: MD: 9 ML, CD: 4 ML/HR X 13 HR, ED: 2.6 ML/UNIT X 3
     Route: 050
     Dates: start: 20170516, end: 20170912
  30. NITRAZEPAM [Concomitant]
     Active Substance: NITRAZEPAM
     Indication: PRODUCT USED FOR UNKNOWN INDICATION
     Route: 048
  31. DUODOPA [Suspect]
     Active Substance: CARBIDOPA\LEVODOPA
     Dosage: MD: 8 ML, CD: 2.7 ML/HR X 16 HR, ED: 1 ML/UNIT X 1
     Route: 050
     Dates: start: 20170217, end: 20170220
  32. DUODOPA [Suspect]
     Active Substance: CARBIDOPA\LEVODOPA
     Dosage: MD: 7 ML, CD: 3.1 ML/HR X 16 HR, ED: 1 ML/UNIT X 1
     Route: 050
     Dates: start: 20170221, end: 20170221
  33. DUODOPA [Suspect]
     Active Substance: CARBIDOPA\LEVODOPA
     Dosage: MD: 6 ML, CD: 3.3 ML/HR X 16 HR, ED: 1.5 ML/UNIT X 1
     Route: 050
     Dates: start: 20170221, end: 20170223
  34. DUODOPA [Suspect]
     Active Substance: CARBIDOPA\LEVODOPA
     Dosage: MD: 9 ML, CD: 4.5 ML/HR X 16 HR, ED: 2.6 ML/UNIT X 2
     Route: 050
     Dates: start: 20170419, end: 20170425
  35. DUODOPA [Suspect]
     Active Substance: CARBIDOPA\LEVODOPA
     Dosage: MD: 8 ML, CD: 2.9 ML/HR X 16 HR, ED: 1 ML/UNIT X 1
     Route: 050
     Dates: start: 20170220, end: 20170221
  36. DUODOPA [Suspect]
     Active Substance: CARBIDOPA\LEVODOPA
     Dosage: MD: 6 ML, CD: 3.5 ML/HR X 16 HR, ED: 2 ML/UNIT X 1
     Route: 050
     Dates: start: 20170223, end: 20170223
  37. DUODOPA [Suspect]
     Active Substance: CARBIDOPA\LEVODOPA
     Dosage: MD: 9 ML, CD: 4.4 ML/HR X 16 HR, ED: 3 ML/UNIT X 2
     Route: 050
     Dates: start: 20170311, end: 20170317
  38. DUODOPA [Suspect]
     Active Substance: CARBIDOPA\LEVODOPA
     Dosage: MD: 9 ML, CD: 4.4 ML/HR X 16 HR, ED: 3 ML/UNIT X 2
     Route: 050
     Dates: start: 20170405, end: 20170411
  39. ETIZOLAM [Concomitant]
     Active Substance: ETIZOLAM
     Indication: PRODUCT USED FOR UNKNOWN INDICATION
     Route: 048
  40. ZONISAMIDE. [Concomitant]
     Active Substance: ZONISAMIDE
     Indication: PRODUCT USED FOR UNKNOWN INDICATION
     Route: 048
     Dates: start: 20170228, end: 20170404
  41. BENFOTIAMINE [Concomitant]
     Active Substance: BENFOTIAMINE
     Indication: PROPHYLAXIS
     Route: 048
     Dates: start: 20170517, end: 20170524
  42. VITAMIN B COMPLEX [Concomitant]
     Active Substance: CYANOCOBALAMIN\DEXPANTHENOL\NIACINAMIDE\PYRIDOXINE HYDROCHLORIDE\RIBOFLAVIN 5^-PHOSPHATE SODIUM\THIAMINE HYDROCHLORIDE\VITAMIN B COMPLEX
     Indication: PROPHYLAXIS
     Route: 048
     Dates: start: 20170525
  43. DOPACOL [Concomitant]
     Active Substance: CARBIDOPA\LEVODOPA
     Route: 048
     Dates: start: 20170912, end: 20170912

REACTIONS (13)
  - Pneumonia aspiration [Recovered/Resolved]
  - On and off phenomenon [Recovering/Resolving]
  - Urticaria chronic [Recovering/Resolving]
  - Pain in extremity [Not Recovered/Not Resolved]
  - Incision site dermatitis [Recovered/Resolved]
  - Dystonia [Not Recovered/Not Resolved]
  - Delusion [Recovered/Resolved]
  - Dysphagia [Recovering/Resolving]
  - Stoma site hypergranulation [Not Recovered/Not Resolved]
  - Vitamin B1 deficiency [Not Recovered/Not Resolved]
  - Pain in extremity [Not Recovered/Not Resolved]
  - Gastrooesophageal reflux disease [Recovered/Resolved]
  - Stoma site infection [Recovered/Resolved]

NARRATIVE: CASE EVENT DATE: 20170216
